FAERS Safety Report 4345355-1 (Version None)
Quarter: 2004Q2

REPORT INFORMATION
  Report Type: 
  Country: None (occurrence: None)
  Receive Date: 20040422
  Receipt Date: 20040422
  Transmission Date: 20050107
  Serious: Yes (Hospitalization)
  Sender: FDA-Public Use
  Company Number: None

PATIENT
  Age: 71 Year
  Sex: Female
  Weight: 81.1939 kg

DRUGS (4)
  1. ZOMETA [Suspect]
     Indication: BREAST CANCER METASTATIC
     Dosage: 4 MG ONCE INTRAVENOUS
     Route: 042
     Dates: start: 20040420, end: 20040420
  2. ASPIRIN [Concomitant]
  3. TAMOXIFEN CITRATE [Concomitant]
  4. ACETAMINOPHEN [Concomitant]

REACTIONS (1)
  - BLOOD PRESSURE DECREASED [None]
